FAERS Safety Report 16620060 (Version 1)
Quarter: 2019Q3

REPORT INFORMATION
  Report Type: Spontaneous
  Country: US (occurrence: US)
  Receive Date: 20190723
  Receipt Date: 20190723
  Transmission Date: 20191004
  Serious: Yes (Hospitalization)
  Sender: FDA-Public Use
  Company Number: US-IGSA-SR10007209

PATIENT
  Age: 85 Year
  Sex: Female
  Weight: 54.4 kg

DRUGS (3)
  1. GAMUNEX-C [Suspect]
     Active Substance: HUMAN IMMUNOGLOBULIN G
     Dosage: 10 G, UNK
     Dates: start: 20181021, end: 20181021
  2. GAMUNEX-C [Suspect]
     Active Substance: HUMAN IMMUNOGLOBULIN G
     Indication: MYASTHENIA GRAVIS
     Dosage: 20 G, QD
     Route: 042
     Dates: start: 20181021, end: 20181021
  3. GAMUNEX-C [Suspect]
     Active Substance: HUMAN IMMUNOGLOBULIN G
     Dosage: 5 G, UNK
     Dates: start: 20181021, end: 20181021

REACTIONS (4)
  - Malaise [Recovered/Resolved]
  - Nausea [Recovered/Resolved]
  - Fluid overload [Recovered/Resolved]
  - Panic attack [Recovered/Resolved]

NARRATIVE: CASE EVENT DATE: 20181021
